FAERS Safety Report 23675108 (Version 1)
Quarter: 2024Q1

REPORT INFORMATION
  Report Type: Spontaneous
  Country: CN (occurrence: CN)
  Receive Date: 20240326
  Receipt Date: 20240326
  Transmission Date: 20240409
  Serious: Yes (Other)
  Sender: FDA-Public Use
  Company Number: CN-BEIGENE-BGN-2024-004180

PATIENT

DRUGS (3)
  1. TISLELIZUMAB [Suspect]
     Active Substance: TISLELIZUMAB
     Indication: Metastatic neoplasm
     Dosage: 200 MILLIGRAM
     Route: 041
     Dates: start: 20231225, end: 20240301
  2. SURUFATINIB [Suspect]
     Active Substance: SURUFATINIB
     Indication: Metastatic neoplasm
     Dosage: 200 MILLIGRAM, QD
     Route: 048
     Dates: start: 20231225, end: 20240301
  3. SODIUM CHLORIDE [Concomitant]
     Active Substance: SODIUM CHLORIDE
     Indication: Vehicle solution use
     Dosage: 250 MILLILITER
     Route: 041
     Dates: start: 20231225

REACTIONS (1)
  - Hepatic function abnormal [Recovering/Resolving]

NARRATIVE: CASE EVENT DATE: 20240301
